FAERS Safety Report 4332060-0 (Version None)
Quarter: 2004Q1

REPORT INFORMATION
  Report Type: 
  Country: None (occurrence: None)
  Receive Date: 20040330
  Receipt Date: 20040311
  Transmission Date: 20041129
  Serious: Yes (Hospitalization)
  Sender: FDA-Public Use
  Company Number: B0326349A

PATIENT
  Sex: Male

DRUGS (6)
  1. FLOVENT [Suspect]
     Indication: ASTHMA
     Dosage: INHALED
  2. SALMETEROL XINAFOATE [Concomitant]
  3. MONTELUKAST SODIUM [Concomitant]
  4. SODIUM CROMOGLYCATE [Concomitant]
  5. BECLOMETHASONE DIPROPIONATE [Concomitant]
  6. BUDESONIDE [Concomitant]

REACTIONS (5)
  - DYSPNOEA [None]
  - ELECTROMYOGRAM ABNORMAL [None]
  - FATIGUE [None]
  - MUSCULAR WEAKNESS [None]
  - MYOPATHY STEROID [None]
